FAERS Safety Report 15371188 (Version 3)
Quarter: 2018Q4

REPORT INFORMATION
  Report Type: Report from Study
  Country: None (occurrence: US)
  Receive Date: 20180911
  Receipt Date: 20181108
  Transmission Date: 20190204
  Serious: Yes (Other)
  Sender: FDA-Public Use
  Company Number: US-ABBVIE-18K-163-2479037-00

PATIENT
  Age: 64 Year
  Sex: Female
  Weight: 90.8 kg

DRUGS (2)
  1. HUMIRA [Suspect]
     Active Substance: ADALIMUMAB
     Indication: ARTHRITIS
  2. HUMIRA [Suspect]
     Active Substance: ADALIMUMAB
     Indication: PSORIATIC ARTHROPATHY
     Route: 058
     Dates: start: 20180524, end: 20180902

REACTIONS (5)
  - Inflammation [Recovering/Resolving]
  - Ingrowing nail [Recovering/Resolving]
  - Staphylococcal skin infection [Recovering/Resolving]
  - Fungal skin infection [Recovering/Resolving]
  - Procedural pain [Unknown]

NARRATIVE: CASE EVENT DATE: 2018
